FAERS Safety Report 20698131 (Version 1)
Quarter: 2022Q2

REPORT INFORMATION
  Report Type: Spontaneous
  Country: CN (occurrence: None)
  Receive Date: 20220412
  Receipt Date: 20220412
  Transmission Date: 20220721
  Serious: Yes (Other)
  Sender: FDA-Public Use
  Company Number: CN-Evus Pharmaceuticals, LLC-EPL202204-000039

PATIENT
  Age: 62 Year
  Sex: Male

DRUGS (2)
  1. NITROGLYCERIN [Suspect]
     Active Substance: NITROGLYCERIN
     Indication: Product used for unknown indication
     Dosage: UNKNOWN
     Route: 065
  2. NITROGLYCERIN [Suspect]
     Active Substance: NITROGLYCERIN
     Dosage: 0.5 MG
     Route: 060

REACTIONS (7)
  - Electrocardiogram ST segment elevation [Unknown]
  - Seizure [Unknown]
  - Arteriospasm coronary [Unknown]
  - Bradycardia [Unknown]
  - Chest discomfort [Recovered/Resolved]
  - Syncope [Recovered/Resolved]
  - Hypotension [Unknown]
